FAERS Safety Report 10748788 (Version 2)
Quarter: 2015Q1

REPORT INFORMATION
  Report Type: Spontaneous
  Country: US (occurrence: US)
  Receive Date: 20150129
  Receipt Date: 20150224
  Transmission Date: 20150721
  Serious: Yes (Hospitalization, Other)
  Sender: FDA-Public Use
  Company Number: US-009507513-1501USA009184

PATIENT
  Age: 60 Year
  Sex: Male

DRUGS (1)
  1. INTRON A [Suspect]
     Active Substance: INTERFERON ALFA-2B
     Indication: MALIGNANT MELANOMA
     Dosage: 12 MILLION IU, TID
     Dates: start: 201402

REACTIONS (2)
  - Surgery [Unknown]
  - Hospitalisation [Unknown]

NARRATIVE: CASE EVENT DATE: 20140606
